FAERS Safety Report 13897105 (Version 1)
Quarter: 2017Q3

REPORT INFORMATION
  Report Type: Report from Study
  Country: None (occurrence: US)
  Receive Date: 20170823
  Receipt Date: 20170823
  Transmission Date: 20171127
  Serious: No
  Sender: FDA-Public Use
  Company Number: US-SWEDISH ORPHAN INTERNATIONAL AB-2017US0429

PATIENT
  Age: 61 Year
  Sex: Male

DRUGS (1)
  1. KINERET [Suspect]
     Active Substance: ANAKINRA
     Indication: MONOCLONAL GAMMOPATHY
     Route: 058

REACTIONS (1)
  - Off label use [Not Recovered/Not Resolved]
